FAERS Safety Report 6216307-1 (Version None)
Quarter: 2009Q2

REPORT INFORMATION
  Report Type: 
  Country: None (occurrence: None)
  Receive Date: 20090603
  Receipt Date: 20090603
  Transmission Date: 20091009
  Serious: Yes (Hospitalization)
  Sender: FDA-Public Use
  Company Number: None

PATIENT
  Sex: Male
  Weight: 148.3 kg

DRUGS (2)
  1. FLUOROURACIL [Suspect]
     Dosage: 1055MG
  2. LEUCOVORIN CALCIUM [Suspect]
     Dosage: 1055 MG

REACTIONS (1)
  - PULMONARY EMBOLISM [None]
